FAERS Safety Report 9458118 (Version 1)
Quarter: 2013Q3

REPORT INFORMATION
  Report Type: Spontaneous
  Country: US (occurrence: US)
  Receive Date: 20130814
  Receipt Date: 20130814
  Transmission Date: 20140515
  Serious: Yes (Other)
  Sender: FDA-Public Use
  Company Number: US-ROXANE LABORATORIES, INC.-2013-RO-01341RO

PATIENT
  Age: 82 Year
  Sex: Male

DRUGS (1)
  1. IPRATROPIUM BROMIDE NASAL SOLUTION, 0.06% [Suspect]
     Indication: RHINORRHOEA
     Route: 045
     Dates: start: 20130726

REACTIONS (1)
  - Dyspnoea [Recovered/Resolved]
